FAERS Safety Report 9095887 (Version 3)
Quarter: 2013Q3

REPORT INFORMATION
  Report Type: Spontaneous
  Country: US (occurrence: US)
  Receive Date: 20130220
  Receipt Date: 20130723
  Transmission Date: 20140515
  Serious: No
  Sender: FDA-Public Use
  Company Number: US-009507513-1302USA008867

PATIENT
  Age: 51 Year
  Sex: Female

DRUGS (8)
  1. PEGINTRON [Suspect]
     Indication: HEPATITIS C
     Dosage: REDIPEN
     Dates: start: 20130408, end: 20130514
  2. PEGINTRON [Suspect]
     Dosage: 150 MICROGRAM, QW
     Dates: start: 20121207, end: 20130111
  3. PEGINTRON [Suspect]
     Dosage: UNK
  4. PEGINTRON [Suspect]
     Dosage: UNK
  5. REBETOL [Suspect]
     Indication: HEPATITIS C
     Dosage: UNK
     Dates: start: 20130408
  6. REBETOL [Suspect]
     Dosage: UNK
  7. VICTRELIS [Suspect]
     Indication: HEPATITIS C
     Dosage: UNK
     Dates: start: 20130507
  8. VICTRELIS [Suspect]
     Dosage: UNK
     Dates: start: 20130515

REACTIONS (7)
  - Hypersensitivity [Not Recovered/Not Resolved]
  - Pruritus [Not Recovered/Not Resolved]
  - Injection site rash [Not Recovered/Not Resolved]
  - Drug dose omission [Unknown]
  - Product quality issue [Unknown]
  - Injection site swelling [Unknown]
  - Frustration [Unknown]
